FAERS Safety Report 25309952 (Version 1)
Quarter: 2025Q2

REPORT INFORMATION
  Report Type: Spontaneous
  Country: ES (occurrence: ES)
  Receive Date: 20250514
  Receipt Date: 20250514
  Transmission Date: 20250716
  Serious: Yes (Death)
  Sender: MERCK SHARP & DOHME LLC
  Company Number: None

PATIENT
  Age: 16 Month
  Sex: Female

DRUGS (3)
  1. VARIVAX [Suspect]
     Active Substance: VARICELLA-ZOSTER VIRUS STRAIN OKA/MERCK LIVE ANTIGEN
     Indication: Prophylaxis
     Route: 030
     Dates: start: 20241104, end: 20241104
  2. FLIXOTIDE 50 MICROGRAMS/INHALATION, SUSPENSION FOR INHALATION IN PR... [Concomitant]
     Route: 055
     Dates: start: 20241014
  3. FLUARIX TETRA SUSPENSION FOR INJECTION IN PRE-FILLED SYRINGE, 1 pre... [Concomitant]
     Indication: Prophylaxis
     Route: 030
     Dates: start: 20241104, end: 20241104

REACTIONS (2)
  - Acute hepatic failure [Fatal]
  - Varicella zoster virus infection [Fatal]

NARRATIVE: CASE EVENT DATE: 20241123
